APPROVED DRUG PRODUCT: SORAFENIB TOSYLATE
Active Ingredient: SORAFENIB TOSYLATE
Strength: EQ 200MG BASE
Dosage Form/Route: TABLET;ORAL
Application: A212228 | Product #001
Applicant: APOTEX INC
Approved: Jan 27, 2025 | RLD: No | RS: No | Type: DISCN